FAERS Safety Report 24646037 (Version 1)
Quarter: 2024Q4

REPORT INFORMATION
  Report Type: Spontaneous
  Country: US (occurrence: US)
  Receive Date: 20241121
  Receipt Date: 20241121
  Transmission Date: 20250114
  Serious: No
  Sender: COLLEGIUM PHARMACEUTICAL
  Company Number: US-COLLEGIUM PHARMACEUTICAL, INC.-20240100051

PATIENT

DRUGS (3)
  1. BELBUCA [Suspect]
     Active Substance: BUPRENORPHINE HYDROCHLORIDE
     Indication: Fibromyalgia
     Dosage: 300 MICROGRAM, BID (EVERY 12 HOURS)
     Route: 002
  2. BELBUCA [Suspect]
     Active Substance: BUPRENORPHINE HYDROCHLORIDE
     Dosage: 450 MICROGRAM, BID (EVERY 12 HOURS)
     Route: 002
     Dates: start: 20240114
  3. OXYCODONE [Concomitant]
     Active Substance: OXYCODONE
     Indication: Fibromyalgia
     Dosage: 10 MILLIGRAM, UNKNOWN
     Route: 065

REACTIONS (1)
  - Nausea [Unknown]

NARRATIVE: CASE EVENT DATE: 20240101
